FAERS Safety Report 22182839 (Version 4)
Quarter: 2023Q2

REPORT INFORMATION
  Report Type: Report from Study
  Country: DK (occurrence: None)
  Receive Date: 20230406
  Receipt Date: 20230508
  Transmission Date: 20230721
  Serious: Yes (Hospitalization, Other)
  Sender: FDA-Public Use
  Company Number: 2023A079417

PATIENT
  Age: 25549 Day
  Sex: Female

DRUGS (87)
  1. OLAPARIB [Suspect]
     Active Substance: OLAPARIB
     Indication: Ovarian cancer
     Route: 048
     Dates: start: 20210603, end: 20221230
  2. OLAPARIB [Suspect]
     Active Substance: OLAPARIB
     Indication: Ovarian cancer
     Route: 048
     Dates: start: 20230112, end: 20230404
  3. OLAPARIB [Suspect]
     Active Substance: OLAPARIB
     Indication: Ovarian cancer
     Route: 048
     Dates: start: 20230427
  4. DURVALUMAB [Suspect]
     Active Substance: DURVALUMAB
     Indication: Ovarian cancer
     Route: 042
     Dates: start: 20210107, end: 20210107
  5. DURVALUMAB [Suspect]
     Active Substance: DURVALUMAB
     Indication: Ovarian cancer
     Route: 042
     Dates: start: 20210127, end: 20210127
  6. DURVALUMAB [Suspect]
     Active Substance: DURVALUMAB
     Indication: Ovarian cancer
     Route: 042
     Dates: start: 20210310, end: 20210310
  7. DURVALUMAB [Suspect]
     Active Substance: DURVALUMAB
     Indication: Ovarian cancer
     Route: 042
     Dates: start: 20210331, end: 20210331
  8. DURVALUMAB [Suspect]
     Active Substance: DURVALUMAB
     Indication: Ovarian cancer
     Route: 042
     Dates: start: 20210421, end: 20210421
  9. DURVALUMAB [Suspect]
     Active Substance: DURVALUMAB
     Indication: Ovarian cancer
     Route: 042
     Dates: start: 20210512, end: 20210512
  10. DURVALUMAB [Suspect]
     Active Substance: DURVALUMAB
     Indication: Ovarian cancer
     Route: 042
     Dates: start: 20210603, end: 20210603
  11. DURVALUMAB [Suspect]
     Active Substance: DURVALUMAB
     Indication: Ovarian cancer
     Route: 042
     Dates: start: 20210623, end: 20210623
  12. DURVALUMAB [Suspect]
     Active Substance: DURVALUMAB
     Indication: Ovarian cancer
     Route: 042
     Dates: start: 20210715, end: 20210721
  13. DURVALUMAB [Suspect]
     Active Substance: DURVALUMAB
     Indication: Ovarian cancer
     Route: 042
     Dates: start: 20210805, end: 20210805
  14. DURVALUMAB [Suspect]
     Active Substance: DURVALUMAB
     Indication: Ovarian cancer
     Route: 042
     Dates: start: 20210826, end: 20210826
  15. DURVALUMAB [Suspect]
     Active Substance: DURVALUMAB
     Indication: Ovarian cancer
     Route: 042
     Dates: start: 20210916, end: 20210916
  16. DURVALUMAB [Suspect]
     Active Substance: DURVALUMAB
     Indication: Ovarian cancer
     Route: 042
     Dates: start: 20211007, end: 20211007
  17. DURVALUMAB [Suspect]
     Active Substance: DURVALUMAB
     Indication: Ovarian cancer
     Route: 042
     Dates: start: 20211029, end: 20211029
  18. DURVALUMAB [Suspect]
     Active Substance: DURVALUMAB
     Indication: Ovarian cancer
     Route: 042
     Dates: start: 20211118, end: 20211118
  19. DURVALUMAB [Suspect]
     Active Substance: DURVALUMAB
     Indication: Ovarian cancer
     Route: 042
     Dates: start: 20211209, end: 20211209
  20. DURVALUMAB [Suspect]
     Active Substance: DURVALUMAB
     Indication: Ovarian cancer
     Route: 042
     Dates: start: 20211230, end: 20211230
  21. DURVALUMAB [Suspect]
     Active Substance: DURVALUMAB
     Indication: Ovarian cancer
     Route: 042
     Dates: start: 20220120, end: 20220120
  22. DURVALUMAB [Suspect]
     Active Substance: DURVALUMAB
     Indication: Ovarian cancer
     Route: 042
     Dates: start: 20220210, end: 20220210
  23. DURVALUMAB [Suspect]
     Active Substance: DURVALUMAB
     Indication: Ovarian cancer
     Route: 042
     Dates: start: 20220303, end: 20220303
  24. DURVALUMAB [Suspect]
     Active Substance: DURVALUMAB
     Indication: Ovarian cancer
     Route: 042
     Dates: start: 20220324, end: 20220324
  25. DURVALUMAB [Suspect]
     Active Substance: DURVALUMAB
     Indication: Ovarian cancer
     Route: 042
     Dates: start: 20220413, end: 20220413
  26. DURVALUMAB [Suspect]
     Active Substance: DURVALUMAB
     Indication: Ovarian cancer
     Route: 042
     Dates: start: 20220505, end: 20220505
  27. DURVALUMAB [Suspect]
     Active Substance: DURVALUMAB
     Indication: Ovarian cancer
     Route: 042
     Dates: start: 20220525, end: 20220525
  28. DURVALUMAB [Suspect]
     Active Substance: DURVALUMAB
     Indication: Ovarian cancer
     Route: 042
     Dates: start: 20220617, end: 20220617
  29. DURVALUMAB [Suspect]
     Active Substance: DURVALUMAB
     Indication: Ovarian cancer
     Route: 042
     Dates: start: 20220712, end: 20220712
  30. DURVALUMAB [Suspect]
     Active Substance: DURVALUMAB
     Indication: Ovarian cancer
     Route: 042
     Dates: start: 20220804, end: 20220804
  31. DURVALUMAB [Suspect]
     Active Substance: DURVALUMAB
     Indication: Ovarian cancer
     Route: 042
     Dates: start: 20220825, end: 20220825
  32. DURVALUMAB [Suspect]
     Active Substance: DURVALUMAB
     Indication: Ovarian cancer
     Route: 042
     Dates: start: 20220915, end: 20220915
  33. DURVALUMAB [Suspect]
     Active Substance: DURVALUMAB
     Indication: Ovarian cancer
     Route: 042
     Dates: start: 20221006, end: 20221006
  34. DURVALUMAB [Suspect]
     Active Substance: DURVALUMAB
     Indication: Ovarian cancer
     Route: 042
     Dates: start: 20221027, end: 20221027
  35. DURVALUMAB [Suspect]
     Active Substance: DURVALUMAB
     Indication: Ovarian cancer
     Route: 042
     Dates: start: 20221118, end: 20221118
  36. DURVALUMAB [Suspect]
     Active Substance: DURVALUMAB
     Indication: Ovarian cancer
     Route: 042
     Dates: start: 20221208, end: 20221208
  37. DURVALUMAB [Suspect]
     Active Substance: DURVALUMAB
     Indication: Ovarian cancer
     Route: 042
     Dates: start: 20230112, end: 20230112
  38. DURVALUMAB [Suspect]
     Active Substance: DURVALUMAB
     Indication: Ovarian cancer
     Route: 042
     Dates: start: 20230202, end: 20230202
  39. CARBOPLATIN [Concomitant]
     Active Substance: CARBOPLATIN
     Indication: Ovarian cancer
     Route: 042
     Dates: start: 20201215, end: 20201215
  40. CARBOPLATIN [Concomitant]
     Active Substance: CARBOPLATIN
     Indication: Ovarian cancer
     Route: 042
     Dates: start: 20210107, end: 20210107
  41. CARBOPLATIN [Concomitant]
     Active Substance: CARBOPLATIN
     Indication: Ovarian cancer
     Route: 042
     Dates: start: 20210127, end: 20210127
  42. CARBOPLATIN [Concomitant]
     Active Substance: CARBOPLATIN
     Indication: Ovarian cancer
     Route: 042
     Dates: start: 20210310, end: 20210310
  43. CARBOPLATIN [Concomitant]
     Active Substance: CARBOPLATIN
     Indication: Ovarian cancer
     Route: 042
     Dates: start: 20210331, end: 20210331
  44. CARBOPLATIN [Concomitant]
     Active Substance: CARBOPLATIN
     Indication: Ovarian cancer
     Route: 042
     Dates: start: 20210421, end: 20210421
  45. PACLITAXEL [Concomitant]
     Active Substance: PACLITAXEL
     Indication: Ovarian cancer
     Route: 042
     Dates: start: 20201215, end: 20201215
  46. PACLITAXEL [Concomitant]
     Active Substance: PACLITAXEL
     Indication: Ovarian cancer
     Route: 042
     Dates: start: 20210107, end: 20210107
  47. PACLITAXEL [Concomitant]
     Active Substance: PACLITAXEL
     Indication: Ovarian cancer
     Route: 042
     Dates: start: 20210127, end: 20210127
  48. PACLITAXEL [Concomitant]
     Active Substance: PACLITAXEL
     Indication: Ovarian cancer
     Route: 042
     Dates: start: 20210310, end: 20210310
  49. PACLITAXEL [Concomitant]
     Active Substance: PACLITAXEL
     Indication: Ovarian cancer
     Route: 042
     Dates: start: 20210331, end: 20210331
  50. PACLITAXEL [Concomitant]
     Active Substance: PACLITAXEL
     Indication: Ovarian cancer
     Route: 042
     Dates: start: 20210421, end: 20210421
  51. BEVACIZUMAB [Concomitant]
     Active Substance: BEVACIZUMAB
     Indication: Ovarian cancer
     Route: 042
     Dates: start: 20210107, end: 20210107
  52. BEVACIZUMAB [Concomitant]
     Active Substance: BEVACIZUMAB
     Indication: Ovarian cancer
     Route: 042
     Dates: start: 20210331, end: 20210331
  53. BEVACIZUMAB [Concomitant]
     Active Substance: BEVACIZUMAB
     Indication: Ovarian cancer
     Route: 042
     Dates: start: 20210421, end: 20210421
  54. BEVACIZUMAB [Concomitant]
     Active Substance: BEVACIZUMAB
     Indication: Ovarian cancer
     Route: 042
     Dates: start: 20210512, end: 20210512
  55. BEVACIZUMAB [Concomitant]
     Active Substance: BEVACIZUMAB
     Indication: Ovarian cancer
     Route: 042
     Dates: start: 20210603, end: 20210603
  56. BEVACIZUMAB [Concomitant]
     Active Substance: BEVACIZUMAB
     Indication: Ovarian cancer
     Route: 042
     Dates: start: 20210623, end: 20210623
  57. BEVACIZUMAB [Concomitant]
     Active Substance: BEVACIZUMAB
     Indication: Ovarian cancer
     Route: 042
     Dates: start: 20210715, end: 20210715
  58. BEVACIZUMAB [Concomitant]
     Active Substance: BEVACIZUMAB
     Indication: Ovarian cancer
     Route: 042
     Dates: start: 20210805, end: 20210805
  59. BEVACIZUMAB [Concomitant]
     Active Substance: BEVACIZUMAB
     Indication: Ovarian cancer
     Route: 042
     Dates: start: 20210826, end: 20210826
  60. BEVACIZUMAB [Concomitant]
     Active Substance: BEVACIZUMAB
     Indication: Ovarian cancer
     Route: 042
     Dates: start: 20210916, end: 20210916
  61. BEVACIZUMAB [Concomitant]
     Active Substance: BEVACIZUMAB
     Indication: Ovarian cancer
     Route: 042
     Dates: start: 20211007, end: 20211007
  62. BEVACIZUMAB [Concomitant]
     Active Substance: BEVACIZUMAB
     Indication: Ovarian cancer
     Route: 042
     Dates: start: 20211029, end: 20211029
  63. BEVACIZUMAB [Concomitant]
     Active Substance: BEVACIZUMAB
     Indication: Ovarian cancer
     Route: 042
     Dates: start: 20211118, end: 20211118
  64. BEVACIZUMAB [Concomitant]
     Active Substance: BEVACIZUMAB
     Indication: Ovarian cancer
     Route: 042
     Dates: start: 20211209, end: 20211209
  65. BEVACIZUMAB [Concomitant]
     Active Substance: BEVACIZUMAB
     Indication: Ovarian cancer
     Route: 042
     Dates: start: 20211230, end: 20211230
  66. BEVACIZUMAB [Concomitant]
     Active Substance: BEVACIZUMAB
     Indication: Ovarian cancer
     Route: 042
     Dates: start: 20220120, end: 20220120
  67. BEVACIZUMAB [Concomitant]
     Active Substance: BEVACIZUMAB
     Indication: Ovarian cancer
     Route: 042
     Dates: start: 20220210, end: 20220210
  68. BEVACIZUMAB [Concomitant]
     Active Substance: BEVACIZUMAB
     Indication: Ovarian cancer
     Route: 042
     Dates: start: 20220303, end: 20220303
  69. BEVACIZUMAB [Concomitant]
     Active Substance: BEVACIZUMAB
     Indication: Ovarian cancer
     Route: 042
     Dates: start: 20220324, end: 20220324
  70. MOVICOL [Concomitant]
     Active Substance: POLYETHYLENE GLYCOL 3350\POTASSIUM CHLORIDE\SODIUM BICARBONATE\SODIUM CHLORIDE
     Indication: Constipation
     Dosage: 1.00 DOSE AS REQUIRED
     Route: 048
     Dates: start: 20201211
  71. SYSTANE (HYPROMELLOSE 2910 (4000 MPA.S)) [Concomitant]
     Active Substance: HYPROMELLOSE 2910 (4000 MPA.S)
     Indication: Dry eye
     Route: 047
     Dates: start: 2018
  72. VITAMINS [Concomitant]
     Active Substance: VITAMINS
     Indication: Vitamin supplementation
     Route: 048
     Dates: start: 20201001
  73. VAGIFEM [Concomitant]
     Active Substance: ESTRADIOL
     Indication: Vulvovaginal dryness
     Dosage: 1.00 SUPPOSITORIA THREE TIMES A WEEK
     Route: 067
     Dates: start: 20230111
  74. VITAMIN B COMPLEX [Concomitant]
     Active Substance: CYANOCOBALAMIN\DEXPANTHENOL\NIACINAMIDE\PYRIDOXINE HYDROCHLORIDE\RIBOFLAVIN 5^-PHOSPHATE SODIUM\THIA
     Indication: Vitamin supplementation
     Route: 048
     Dates: start: 20151101
  75. METOPROLOL SUCCINATE [Concomitant]
     Active Substance: METOPROLOL SUCCINATE
     Indication: Supraventricular tachycardia
     Dosage: 50.0MG AS REQUIRED
     Route: 048
     Dates: start: 20201217
  76. DOMPERIDONE [Concomitant]
     Active Substance: DOMPERIDONE
     Indication: Nausea
     Dosage: 10.0MG AS REQUIRED
     Route: 048
     Dates: start: 20201222
  77. ACETAMINOPHEN [Concomitant]
     Active Substance: ACETAMINOPHEN
     Indication: Pain in extremity
     Dosage: 1000.0MG AS REQUIRED
     Route: 048
     Dates: start: 20210609
  78. IBUPROFEN [Concomitant]
     Active Substance: IBUPROFEN
     Indication: Pain in extremity
     Dosage: 400.0MG AS REQUIRED
     Route: 048
     Dates: start: 20210609
  79. MORFIN [Concomitant]
     Indication: Pain in extremity
     Dosage: 5.0MG AS REQUIRED
     Route: 048
     Dates: start: 20210623
  80. MORFIN [Concomitant]
     Indication: Abdominal pain
     Dosage: 5.0MG AS REQUIRED
     Route: 048
     Dates: start: 20210623
  81. MORFIN [Concomitant]
     Indication: Pain in extremity
     Dosage: 10.0MG AS REQUIRED
     Route: 048
     Dates: start: 20230404
  82. MORFIN [Concomitant]
     Indication: Abdominal pain
     Dosage: 10.0MG AS REQUIRED
     Route: 048
     Dates: start: 20230404
  83. ANDOLEX [Concomitant]
     Indication: Rash maculo-papular
     Dosage: 10.0ML AS REQUIRED
     Route: 002
     Dates: start: 20211102
  84. FLUCONAZOLE [Concomitant]
     Active Substance: FLUCONAZOLE
     Route: 048
     Dates: start: 20220913
  85. DOLOPROCT (FLUOCORTOLON-PIVALET, LIDOCAIN) [Concomitant]
     Indication: Haemorrhoids
     Dosage: 0.5 SUPPOSITORIA TWO TIMES A DAY
     Route: 054
     Dates: start: 20220107
  86. CANASTEN [Concomitant]
     Dosage: 1.00 SUPPOSITORIA DAILY
     Route: 067
     Dates: start: 20211209
  87. DILTIAZEMHYDROCLORID [Concomitant]
     Dosage: 0.5 APPLICATION TWO TIMES A DAY
     Route: 061
     Dates: start: 20220429

REACTIONS (1)
  - Hepatitis [Recovered/Resolved]

NARRATIVE: CASE EVENT DATE: 20230404
